FAERS Safety Report 16864523 (Version 1)
Quarter: 2019Q3

REPORT INFORMATION
  Report Type: Spontaneous
  Country: GB (occurrence: GB)
  Receive Date: 20190928
  Receipt Date: 20190928
  Transmission Date: 20191005
  Serious: Yes (Disabling)
  Sender: FDA-Public Use
  Company Number: GB-ACCORD-155997

PATIENT
  Age: 85 Year
  Sex: Male
  Weight: 62 kg

DRUGS (4)
  1. INDAPAMIDE. [Concomitant]
     Active Substance: INDAPAMIDE
  2. SERTRALINE [Suspect]
     Active Substance: SERTRALINE HYDROCHLORIDE
     Indication: DEPRESSION
     Route: 048
     Dates: start: 2018, end: 2018
  3. TELMISARTAN. [Concomitant]
     Active Substance: TELMISARTAN
  4. FELODIPINE. [Concomitant]
     Active Substance: FELODIPINE

REACTIONS (2)
  - Erectile dysfunction [Not Recovered/Not Resolved]
  - Loss of libido [Not Recovered/Not Resolved]

NARRATIVE: CASE EVENT DATE: 2018
